FAERS Safety Report 20606519 (Version 1)
Quarter: 2022Q1

REPORT INFORMATION
  Report Type: Spontaneous
  Country: HR (occurrence: HR)
  Receive Date: 20220317
  Receipt Date: 20220317
  Transmission Date: 20220423
  Serious: Yes (Death, Other)
  Sender: FDA-Public Use
  Company Number: HR-EUSA PHARMA (UK) LIMITED-2020HR000064

PATIENT
  Sex: Female

DRUGS (3)
  1. VITAMIN A [Suspect]
     Active Substance: VITAMIN A
     Indication: Neuroblastoma
     Dosage: UNK
     Route: 065
  2. DINUTUXIMAB BETA [Suspect]
     Active Substance: DINUTUXIMAB BETA
     Indication: Neuroblastoma
     Dosage: UNK
     Route: 065
     Dates: start: 201708, end: 201712
  3. DINUTUXIMAB BETA [Suspect]
     Active Substance: DINUTUXIMAB BETA
     Dosage: CYCLE 1, CONTINUOUS INFUSION OVER 10 DAYS 10 MG/M2 PER DAY
     Route: 065

REACTIONS (3)
  - Diplegia [Fatal]
  - Metastases to meninges [Fatal]
  - Tachycardia [Unknown]
